FAERS Safety Report 9089545 (Version 3)
Quarter: 2013Q1

REPORT INFORMATION
  Report Type: Spontaneous
  Country: US (occurrence: US)
  Receive Date: 20130201
  Receipt Date: 20130301
  Transmission Date: 20140127
  Serious: No
  Sender: FDA-Public Use
  Company Number: US-PFIZER INC-2013040494

PATIENT
  Sex: Male

DRUGS (2)
  1. PRISTIQ [Suspect]
     Dosage: UNK
  2. LIPITOR [Suspect]
     Dosage: UNK

REACTIONS (1)
  - Influenza [Unknown]
